FAERS Safety Report 9702575 (Version 1)
Quarter: 2013Q4

REPORT INFORMATION
  Report Type: Spontaneous
  Country: US (occurrence: US)
  Receive Date: 20131121
  Receipt Date: 20131121
  Transmission Date: 20140711
  Serious: No
  Sender: FDA-Public Use
  Company Number: US-SPECTRUM PHARMACEUTICALS, INC.-13-F-US-00095

PATIENT
  Age: 35 Year
  Sex: Female

DRUGS (2)
  1. FOLOTYN [Suspect]
     Indication: PERIPHERAL T-CELL LYMPHOMA UNSPECIFIED
     Dosage: UNK
     Route: 042
     Dates: start: 201304
  2. FOLOTYN [Suspect]
     Dosage: BI-WEEKLY
     Route: 042

REACTIONS (2)
  - Mucosal inflammation [Not Recovered/Not Resolved]
  - Neuralgia [Not Recovered/Not Resolved]
